FAERS Safety Report 21208191 (Version 2)
Quarter: 2022Q3

REPORT INFORMATION
  Report Type: Spontaneous
  Country: US (occurrence: US)
  Receive Date: 20220812
  Receipt Date: 20220913
  Transmission Date: 20221026
  Serious: No
  Sender: FDA-Public Use
  Company Number: US-JNJFOC-20220822896

PATIENT

DRUGS (2)
  1. STELARA [Suspect]
     Active Substance: USTEKINUMAB
     Indication: Product used for unknown indication
     Route: 040
     Dates: start: 20220727
  2. STELARA [Suspect]
     Active Substance: USTEKINUMAB
     Route: 040

REACTIONS (2)
  - Dyspnoea [Unknown]
  - Flank pain [Recovered/Resolved]

NARRATIVE: CASE EVENT DATE: 20220727
